FAERS Safety Report 6422918-0 (Version None)
Quarter: 2009Q4

REPORT INFORMATION
  Report Type: 
  Country: None (occurrence: None)
  Receive Date: 20091102
  Receipt Date: 20091006
  Transmission Date: 20100525
  Serious: Yes (Death)
  Sender: FDA-Public Use
  Company Number: PE-MEDIMMUNE-MEDI-0009033

PATIENT
  Sex: Female

DRUGS (3)
  1. SYNAGIS [Suspect]
     Route: 030
     Dates: start: 20090819, end: 20090819
  2. MULTI-VITAMINS [Concomitant]
  3. FERROUS SULFATE TAB [Concomitant]

REACTIONS (1)
  - ASPIRATION [None]
